FAERS Safety Report 24000652 (Version 1)
Quarter: 2024Q2

REPORT INFORMATION
  Report Type: Spontaneous
  Country: US (occurrence: None)
  Receive Date: 20240621
  Receipt Date: 20240621
  Transmission Date: 20240716
  Serious: No
  Sender: FDA-Public Use
  Company Number: None

PATIENT
  Age: 69 Year
  Sex: Female
  Weight: 55.8 kg

DRUGS (2)
  1. GAMMAPLEX [Suspect]
     Active Substance: HUMAN IMMUNOGLOBULIN G
     Indication: Immunodeficiency common variable
     Dosage: 20 G GRAM (S) EVERY FOUR WEEKS INTRAVENOUS
     Route: 042
  2. GAMMAPLEX [Suspect]
     Active Substance: HUMAN IMMUNOGLOBULIN G
     Indication: Immunodeficiency common variable
     Dosage: 5 GRAM(S) EVERY FOUR WEEKS INTRAVENOUS
     Route: 042

REACTIONS (2)
  - Pain [None]
  - Headache [None]

NARRATIVE: CASE EVENT DATE: 20240523
